FAERS Safety Report 13442661 (Version 1)
Quarter: 2017Q2

REPORT INFORMATION
  Report Type: Spontaneous
  Country: GB (occurrence: US)
  Receive Date: 20170413
  Receipt Date: 20170413
  Transmission Date: 20170830
  Serious: Yes (Hospitalization)
  Sender: FDA-Public Use
  Company Number: None

PATIENT
  Age: 34 Year
  Sex: Female
  Weight: 39 kg

DRUGS (1)
  1. DOXIL [Suspect]
     Active Substance: DOXORUBICIN HYDROCHLORIDE
     Dates: end: 20170126

REACTIONS (7)
  - Vomiting [None]
  - Small intestinal obstruction [None]
  - Abdominal distension [None]
  - Pyrexia [None]
  - Hydronephrosis [None]
  - Dyspepsia [None]
  - Ascites [None]

NARRATIVE: CASE EVENT DATE: 20170218
